FAERS Safety Report 24113346 (Version 1)
Quarter: 2024Q3

REPORT INFORMATION
  Report Type: Spontaneous
  Country: FR (occurrence: FR)
  Receive Date: 20240719
  Receipt Date: 20240719
  Transmission Date: 20241017
  Serious: Yes (Hospitalization)
  Sender: TEVA
  Company Number: None

PATIENT
  Age: 65 Year
  Sex: Male

DRUGS (11)
  1. FUROSEMIDE [Suspect]
     Active Substance: FUROSEMIDE
     Indication: Hypertension
     Route: 048
     Dates: start: 20240508, end: 20240612
  2. THIAMINE HYDROCHLORIDE [Suspect]
     Active Substance: THIAMINE HYDROCHLORIDE
     Indication: Vitamin supplementation
     Route: 048
     Dates: start: 20240611, end: 20240613
  3. ZINC GLUCONATE [Suspect]
     Active Substance: ZINC GLUCONATE
     Indication: Mineral supplementation
     Route: 048
     Dates: start: 20240516, end: 20240613
  4. OMNIPAQUE [Suspect]
     Active Substance: IOHEXOL
     Indication: Angiogram
     Dosage: TIME INTERVAL: TOTAL
     Route: 042
     Dates: start: 20240611, end: 20240611
  5. TAMSULOSIN [Suspect]
     Active Substance: TAMSULOSIN
     Indication: Nephrostomy
     Route: 048
     Dates: start: 20240506
  6. NIACINAMIDE [Suspect]
     Active Substance: NIACINAMIDE
     Indication: Vitamin supplementation
     Route: 048
     Dates: start: 20240513, end: 20240612
  7. MAGNESIUM [Suspect]
     Active Substance: MAGNESIUM
     Indication: Hypomagnesaemia
     Route: 048
     Dates: start: 20240509, end: 20240512
  8. MAGNESIUM [Suspect]
     Active Substance: MAGNESIUM
     Indication: Hypomagnesaemia
     Route: 048
     Dates: start: 20240517, end: 20240613
  9. LOVENOX [Suspect]
     Active Substance: ENOXAPARIN SODIUM
     Indication: Cardiovascular event prophylaxis
     Dosage: ANTI-XA/0.4 ML
     Route: 058
     Dates: start: 20240505, end: 20240612
  10. PREGABALIN [Suspect]
     Active Substance: PREGABALIN
     Indication: Neuralgia
     Route: 048
     Dates: start: 20240603, end: 20240611
  11. PREGABALIN [Suspect]
     Active Substance: PREGABALIN
     Indication: Neuralgia
     Route: 048
     Dates: start: 20240612, end: 20240613

REACTIONS (2)
  - Dermatitis exfoliative generalised [Recovered/Resolved]
  - Eosinophilia [Recovered/Resolved]

NARRATIVE: CASE EVENT DATE: 20240612
